FAERS Safety Report 16212081 (Version 5)
Quarter: 2019Q4

REPORT INFORMATION
  Report Type: Spontaneous
  Country: CA (occurrence: CA)
  Receive Date: 20190418
  Receipt Date: 20191118
  Transmission Date: 20200122
  Serious: Yes (Other)
  Sender: FDA-Public Use
  Company Number: CA-ROCHE-2305470

PATIENT
  Age: 7 Year
  Sex: Male

DRUGS (10)
  1. ADVAIR HFA [Concomitant]
     Active Substance: FLUTICASONE PROPIONATE\SALMETEROL XINAFOATE
     Indication: PRODUCT USED FOR UNKNOWN INDICATION
     Route: 065
  2. XOLAIR [Suspect]
     Active Substance: OMALIZUMAB
     Route: 058
     Dates: start: 20190312
  3. XOLAIR [Suspect]
     Active Substance: OMALIZUMAB
     Dosage: (IN 2019)
     Route: 058
     Dates: start: 2019
  4. XOLAIR [Suspect]
     Active Substance: OMALIZUMAB
     Route: 058
     Dates: start: 20191001
  5. FLOVENT [Concomitant]
     Active Substance: FLUTICASONE PROPIONATE
     Indication: PRODUCT USED FOR UNKNOWN INDICATION
     Route: 065
  6. VENTOLIN [Concomitant]
     Active Substance: ALBUTEROL SULFATE
     Indication: PRODUCT USED FOR UNKNOWN INDICATION
     Dosage: 2 DF, BID
     Route: 042
     Dates: start: 2012
  7. ALVESCO [Concomitant]
     Active Substance: CICLESONIDE
     Indication: PRODUCT USED FOR UNKNOWN INDICATION
     Route: 065
  8. XOLAIR [Suspect]
     Active Substance: OMALIZUMAB
     Route: 058
     Dates: start: 20190326
  9. ZENHALE [Concomitant]
     Active Substance: FORMOTEROL FUMARATE\MOMETASONE FUROATE
     Indication: PRODUCT USED FOR UNKNOWN INDICATION
     Dosage: 2 DF, BID
     Route: 055
     Dates: start: 2015
  10. XOLAIR [Suspect]
     Active Substance: OMALIZUMAB
     Indication: ASTHMA
     Route: 058
     Dates: start: 20190227

REACTIONS (10)
  - Feeling hot [Unknown]
  - Blood pressure decreased [Not Recovered/Not Resolved]
  - Abdominal pain [Recovering/Resolving]
  - Asthma [Unknown]
  - Injection site pain [Recovered/Resolved]
  - Dermatitis allergic [Unknown]
  - Pyrexia [Unknown]
  - Headache [Recovering/Resolving]
  - Nausea [Recovering/Resolving]
  - Erythema [Unknown]

NARRATIVE: CASE EVENT DATE: 20190227
